FAERS Safety Report 21636881 (Version 1)
Quarter: 2022Q4

REPORT INFORMATION
  Report Type: Report from Study
  Country: DE (occurrence: DE)
  Receive Date: 20221124
  Receipt Date: 20221124
  Transmission Date: 20230113
  Serious: Yes (Disabling)
  Sender: FDA-Public Use
  Company Number: DE-002147023-NVSC2022DE025228

PATIENT
  Sex: Female

DRUGS (1)
  1. HYRIMOZ [Suspect]
     Active Substance: ADALIMUMAB-ADAZ
     Indication: Product used for unknown indication
     Dosage: 49 MG, EVERY 14 DAYS
     Route: 065
     Dates: end: 20221025

REACTIONS (4)
  - Arthritis [Not Recovered/Not Resolved]
  - Inflammation [Not Recovered/Not Resolved]
  - Inappropriate schedule of product administration [Unknown]
  - Tooth infection [Recovered/Resolved]

NARRATIVE: CASE EVENT DATE: 20220809
